FAERS Safety Report 12942196 (Version 2)
Quarter: 2016Q4

REPORT INFORMATION
  Report Type: Spontaneous
  Country: US (occurrence: US)
  Receive Date: 20161115
  Receipt Date: 20161227
  Transmission Date: 20170207
  Serious: Yes (Other)
  Sender: FDA-Public Use
  Company Number: US-JNJFOC-20161107853

PATIENT
  Sex: Male

DRUGS (4)
  1. RISPERDAL [Suspect]
     Active Substance: RISPERIDONE
     Indication: SCHIZOPHRENIA
     Dosage: 2 MG - 4MG
     Route: 048
     Dates: start: 2009, end: 2013
  2. RISPERDAL CONSTA [Suspect]
     Active Substance: RISPERIDONE
     Indication: SCHIZOPHRENIA
     Dosage: 37.5 MG 50 MG
     Route: 030
     Dates: start: 2009, end: 2013
  3. RISPERDAL CONSTA [Suspect]
     Active Substance: RISPERIDONE
     Indication: SCHIZOPHRENIA
     Dosage: 37.5 MG 50 MG
     Route: 030
     Dates: start: 2005
  4. INVEGA SUSTENNA [Suspect]
     Active Substance: PALIPERIDONE PALMITATE
     Indication: SCHIZOPHRENIA
     Dosage: VARIED DOSE OF 156 MG AND 117 MG
     Route: 030
     Dates: start: 2005, end: 2013

REACTIONS (7)
  - Pulmonary congestion [Unknown]
  - Gynaecomastia [Unknown]
  - Erectile dysfunction [Unknown]
  - Abnormal weight gain [Unknown]
  - Headache [Unknown]
  - Rhinitis [Unknown]
  - Productive cough [Unknown]

NARRATIVE: CASE EVENT DATE: 2006
